FAERS Safety Report 11311044 (Version 5)
Quarter: 2016Q2

REPORT INFORMATION
  Report Type: Report from Study
  Country: BR (occurrence: BR)
  Receive Date: 20150727
  Receipt Date: 20160503
  Transmission Date: 20160815
  Serious: Yes (Hospitalization, Other)
  Sender: FDA-Public Use
  Company Number: BR-ROCHE-1439032

PATIENT
  Sex: Female
  Weight: 60 kg

DRUGS (10)
  1. HYDROCHLOROTHIAZIDE. [Concomitant]
     Active Substance: HYDROCHLOROTHIAZIDE
     Indication: HYPERTENSION
     Route: 065
  2. PREDNISONE. [Concomitant]
     Active Substance: PREDNISONE
     Indication: RHEUMATOID ARTHRITIS
     Route: 065
  3. CLORANA [Concomitant]
     Active Substance: HYDROCHLOROTHIAZIDE
     Indication: HYPERTENSION
  4. AMLODIPINE BESYLATE. [Concomitant]
     Active Substance: AMLODIPINE BESYLATE
     Indication: HYPERTENSION
  5. MABTHERA [Suspect]
     Active Substance: RITUXIMAB
     Dosage: MOST RECENT RITUXIMAB INFUSION WAS RECEIVED ON 24/AUG/2015
     Route: 042
     Dates: end: 201602
  6. LOSARTAN. [Concomitant]
     Active Substance: LOSARTAN
     Route: 065
  7. FOLIC ACID. [Concomitant]
     Active Substance: FOLIC ACID
     Dosage: ADMINISTERED ON WEDNESDAY
     Route: 065
  8. AMLODIPINE [Concomitant]
     Active Substance: AMLODIPINE BESYLATE
     Indication: HYPERTENSION
     Route: 065
  9. LOSARTAN. [Concomitant]
     Active Substance: LOSARTAN
     Route: 065
  10. MABTHERA [Suspect]
     Active Substance: RITUXIMAB
     Indication: JUVENILE IDIOPATHIC ARTHRITIS
     Route: 042
     Dates: start: 20140122, end: 201501

REACTIONS (12)
  - Arthropathy [Unknown]
  - Musculoskeletal disorder [Unknown]
  - Pain [Unknown]
  - Blood cholesterol abnormal [Unknown]
  - Blood pressure decreased [Unknown]
  - Arthralgia [Not Recovered/Not Resolved]
  - Gastric disorder [Unknown]
  - Anxiety [Not Recovered/Not Resolved]
  - Irritability [Unknown]
  - Tension [Unknown]
  - Bone disorder [Not Recovered/Not Resolved]
  - Stress [Unknown]
